FAERS Safety Report 4277776-X (Version None)
Quarter: 2004Q1

REPORT INFORMATION
  Report Type: 
  Country: None (occurrence: None)
  Receive Date: 20040122
  Receipt Date: 19990814
  Transmission Date: 20041129
  Serious: Yes (Congenital Anomaly)
  Sender: FDA-Public Use
  Company Number: 7196

PATIENT
  Sex: Female

DRUGS (3)
  1. GENTAMICIN [Suspect]
  2. DROPERIDOL [Suspect]
     Dosage: 5 MG TID PO
     Route: 048
  3. FERROUS SULFATE TAB [Concomitant]

REACTIONS (3)
  - CHROMOSOME ABNORMALITY [None]
  - DRUG EXPOSURE DURING PREGNANCY [None]
  - MATERNAL DRUGS AFFECTING FOETUS [None]
